FAERS Safety Report 4312197-2 (Version None)
Quarter: 2004Q1

REPORT INFORMATION
  Report Type: 
  Country: None (occurrence: None)
  Receive Date: 20040303
  Receipt Date: 20040219
  Transmission Date: 20041129
  Serious: Yes (Life-Threatening, Hospitalization, Disabling, Other)
  Sender: FDA-Public Use
  Company Number: 2004007507

PATIENT
  Age: 60 Year
  Sex: Male
  Weight: 70 kg

DRUGS (2)
  1. VIAGRA [Suspect]
     Indication: ERECTILE DYSFUNCTION
     Dosage: 50 MG (DAILY), ORAL
     Route: 048
     Dates: start: 20010101, end: 20040128
  2. ALDACTAZINE (SPIRONOLACTONE, ALTIZIDE) [Concomitant]

REACTIONS (4)
  - CAROTID ARTERY STENOSIS [None]
  - CEREBRAL ARTERY OCCLUSION [None]
  - HEMIPLEGIA [None]
  - ISCHAEMIC STROKE [None]
